FAERS Safety Report 15824766 (Version 5)
Quarter: 2023Q1

REPORT INFORMATION
  Report Type: Spontaneous
  Country: US (occurrence: None)
  Receive Date: 20190115
  Receipt Date: 20230222
  Transmission Date: 20230418
  Serious: Yes (Death, Hospitalization, Other)
  Sender: FDA-Public Use
  Company Number: 2018SE99977

PATIENT
  Age: 23891 Day
  Sex: Female

DRUGS (48)
  1. NEXIUM [Suspect]
     Active Substance: ESOMEPRAZOLE MAGNESIUM
     Indication: Gastrooesophageal reflux disease
     Route: 048
     Dates: start: 2006, end: 2017
  2. NEXIUM [Suspect]
     Active Substance: ESOMEPRAZOLE MAGNESIUM
     Indication: Dyspepsia
     Route: 048
     Dates: start: 2006, end: 2017
  3. NEXIUM [Suspect]
     Active Substance: ESOMEPRAZOLE MAGNESIUM
     Indication: Gastrooesophageal reflux disease
     Route: 048
  4. NEXIUM [Suspect]
     Active Substance: ESOMEPRAZOLE MAGNESIUM
     Indication: Dyspepsia
     Route: 048
  5. NEXIUM [Suspect]
     Active Substance: ESOMEPRAZOLE MAGNESIUM
     Indication: Gastrooesophageal reflux disease
     Route: 048
     Dates: start: 200612, end: 200612
  6. NEXIUM [Suspect]
     Active Substance: ESOMEPRAZOLE MAGNESIUM
     Indication: Dyspepsia
     Route: 048
     Dates: start: 200612, end: 200612
  7. NEXIUM [Suspect]
     Active Substance: ESOMEPRAZOLE MAGNESIUM
     Indication: Gastrooesophageal reflux disease
     Route: 048
     Dates: start: 20100712, end: 20161207
  8. NEXIUM [Suspect]
     Active Substance: ESOMEPRAZOLE MAGNESIUM
     Indication: Dyspepsia
     Route: 048
     Dates: start: 20100712, end: 20161207
  9. NEXIUM [Suspect]
     Active Substance: ESOMEPRAZOLE MAGNESIUM
     Indication: Gastrooesophageal reflux disease
     Route: 048
     Dates: start: 20160606
  10. NEXIUM [Suspect]
     Active Substance: ESOMEPRAZOLE MAGNESIUM
     Indication: Dyspepsia
     Route: 048
     Dates: start: 20160606
  11. NEXIUM [Suspect]
     Active Substance: ESOMEPRAZOLE MAGNESIUM
     Indication: Gastrooesophageal reflux disease
     Dosage: GENERIC
     Dates: start: 20170406, end: 20170828
  12. NEXIUM [Suspect]
     Active Substance: ESOMEPRAZOLE MAGNESIUM
     Indication: Dyspepsia
     Dosage: GENERIC
     Dates: start: 20170406, end: 20170828
  13. NEXIUM 24HR [Suspect]
     Active Substance: ESOMEPRAZOLE MAGNESIUM
     Route: 048
  14. PRILOSEC [Suspect]
     Active Substance: OMEPRAZOLE MAGNESIUM
     Indication: Dyspepsia
     Route: 048
  15. PRILOSEC [Suspect]
     Active Substance: OMEPRAZOLE MAGNESIUM
     Indication: Gastrooesophageal reflux disease
     Route: 048
  16. PRILOSEC [Suspect]
     Active Substance: OMEPRAZOLE MAGNESIUM
     Indication: Dyspepsia
     Dosage: GENERIC
     Dates: start: 20061213, end: 20150728
  17. PRILOSEC [Suspect]
     Active Substance: OMEPRAZOLE MAGNESIUM
     Indication: Gastrooesophageal reflux disease
     Dosage: GENERIC
     Dates: start: 20061213, end: 20150728
  18. PRILOSEC [Suspect]
     Active Substance: OMEPRAZOLE MAGNESIUM
     Indication: Dyspepsia
     Dosage: GENERIC
     Dates: start: 20061213, end: 20150728
  19. PRILOSEC [Suspect]
     Active Substance: OMEPRAZOLE MAGNESIUM
     Indication: Gastrooesophageal reflux disease
     Dosage: GENERIC
     Dates: start: 20061213, end: 20150728
  20. PRILOSEC OTC [Suspect]
     Active Substance: OMEPRAZOLE MAGNESIUM
     Indication: Dyspepsia
     Route: 048
     Dates: start: 2006, end: 2017
  21. PRILOSEC OTC [Suspect]
     Active Substance: OMEPRAZOLE MAGNESIUM
     Indication: Gastrooesophageal reflux disease
     Route: 048
     Dates: start: 2006, end: 2017
  22. PRILOSEC OTC [Suspect]
     Active Substance: OMEPRAZOLE MAGNESIUM
     Indication: Dyspepsia
     Route: 048
  23. PRILOSEC OTC [Suspect]
     Active Substance: OMEPRAZOLE MAGNESIUM
     Indication: Gastrooesophageal reflux disease
     Route: 048
  24. PRILOSEC OTC [Suspect]
     Active Substance: OMEPRAZOLE MAGNESIUM
     Indication: Dyspepsia
     Route: 048
     Dates: start: 20060113, end: 20061213
  25. PRILOSEC OTC [Suspect]
     Active Substance: OMEPRAZOLE MAGNESIUM
     Indication: Gastrooesophageal reflux disease
     Route: 048
     Dates: start: 20060113, end: 20061213
  26. PRILOSEC OTC [Suspect]
     Active Substance: OMEPRAZOLE MAGNESIUM
     Indication: Dyspepsia
     Route: 048
     Dates: start: 200612, end: 200612
  27. PRILOSEC OTC [Suspect]
     Active Substance: OMEPRAZOLE MAGNESIUM
     Indication: Gastrooesophageal reflux disease
     Route: 048
     Dates: start: 200612, end: 200612
  28. PRILOSEC OTC [Suspect]
     Active Substance: OMEPRAZOLE MAGNESIUM
     Indication: Dyspepsia
     Route: 048
     Dates: start: 20061213, end: 20070113
  29. PRILOSEC OTC [Suspect]
     Active Substance: OMEPRAZOLE MAGNESIUM
     Indication: Gastrooesophageal reflux disease
     Route: 048
     Dates: start: 20061213, end: 20070113
  30. PRILOSEC OTC [Suspect]
     Active Substance: OMEPRAZOLE MAGNESIUM
     Indication: Dyspepsia
     Route: 048
     Dates: start: 20061218
  31. PRILOSEC OTC [Suspect]
     Active Substance: OMEPRAZOLE MAGNESIUM
     Indication: Gastrooesophageal reflux disease
     Route: 048
     Dates: start: 20061218
  32. PREVACID [Suspect]
     Active Substance: LANSOPRAZOLE
  33. PREVACID 24 HR [Suspect]
     Active Substance: LANSOPRAZOLE
  34. CHOLECALCIFEROL [Concomitant]
     Active Substance: CHOLECALCIFEROL
  35. LISINOPRIL [Concomitant]
     Active Substance: LISINOPRIL
  36. PAXIL [Concomitant]
     Active Substance: PAROXETINE HYDROCHLORIDE
  37. VICODIN [Concomitant]
     Active Substance: ACETAMINOPHEN\HYDROCODONE BITARTRATE
  38. OXYCONTIN [Concomitant]
     Active Substance: OXYCODONE HYDROCHLORIDE
  39. SIMVASTATIN [Concomitant]
     Active Substance: SIMVASTATIN
  40. FERROUS SULFATE [Concomitant]
     Active Substance: FERROUS SULFATE
  41. GABAPENTIN [Concomitant]
     Active Substance: GABAPENTIN
  42. HYDROCHLOROTHIAZIDE [Concomitant]
     Active Substance: HYDROCHLOROTHIAZIDE
  43. ONDANSETRON [Concomitant]
     Active Substance: ONDANSETRON
  44. AMOXICILLIN [Concomitant]
     Active Substance: AMOXICILLIN
  45. PREDNISONE [Concomitant]
     Active Substance: PREDNISONE
  46. CIPROFLOXACIN [Concomitant]
     Active Substance: CIPROFLOXACIN
  47. OXYCODONE [Concomitant]
     Active Substance: OXYCODONE
  48. CELEBREX [Concomitant]
     Active Substance: CELECOXIB

REACTIONS (3)
  - Death [Fatal]
  - Acute kidney injury [Not Recovered/Not Resolved]
  - Chronic kidney disease [Not Recovered/Not Resolved]

NARRATIVE: CASE EVENT DATE: 20161026
